FAERS Safety Report 13090462 (Version 2)
Quarter: 2017Q1

REPORT INFORMATION
  Report Type: Report from Study
  Country: US (occurrence: US)
  Receive Date: 20170105
  Receipt Date: 20170111
  Transmission Date: 20170428
  Serious: Yes (Death)
  Sender: FDA-Public Use
  Company Number: US-ACTELION-A-US2016-145608

PATIENT
  Age: 65 Year
  Sex: Male

DRUGS (5)
  1. METOLAZONE. [Concomitant]
     Active Substance: METOLAZONE
     Dosage: 5 MG, UNK
  2. OPSUMIT [Suspect]
     Active Substance: MACITENTAN
     Indication: PULMONARY ARTERIAL HYPERTENSION
     Dosage: 10 MG, QD
     Route: 048
     Dates: start: 20150818, end: 20161215
  3. ADCIRCA [Concomitant]
     Active Substance: TADALAFIL
  4. ADEMPAS [Concomitant]
     Active Substance: RIOCIGUAT
  5. LASIX [Concomitant]
     Active Substance: FUROSEMIDE
     Dosage: 80 MG, UNK

REACTIONS (6)
  - Fluid retention [Unknown]
  - Oxygen saturation decreased [Unknown]
  - Pain [Unknown]
  - Pulmonary hypertension [Fatal]
  - Weight increased [Unknown]
  - Decreased appetite [Unknown]
